FAERS Safety Report 5283124-9 (Version None)
Quarter: 2007Q2

REPORT INFORMATION
  Report Type: 
  Country: None (occurrence: None)
  Receive Date: 20070402
  Receipt Date: 20070326
  Transmission Date: 20071010
  Serious: Yes (Other)
  Sender: FDA-Public Use
  Company Number: FR-AVENTIS-200710237FR

PATIENT
  Age: 60 Year
  Sex: Female

DRUGS (3)
  1. CALSYN                             /00371903/ [Suspect]
     Route: 030
     Dates: start: 20070101, end: 20070101
  2. SALAZOPYRINE [Concomitant]
     Indication: CROHN'S DISEASE
     Route: 048
  3. PROZAC [Concomitant]
     Route: 048

REACTIONS (3)
  - C-REACTIVE PROTEIN INCREASED [None]
  - CROHN'S DISEASE [None]
  - DIARRHOEA HAEMORRHAGIC [None]
